FAERS Safety Report 16014035 (Version 2)
Quarter: 2020Q3

REPORT INFORMATION
  Report Type: Report from Study
  Country: US (occurrence: US)
  Receive Date: 20190227
  Receipt Date: 20200804
  Transmission Date: 20201102
  Serious: Yes (Hospitalization, Other)
  Sender: FDA-Public Use
  Company Number: US-TEVA-2019-US-1017959

PATIENT
  Age: 69 Year
  Sex: Female

DRUGS (14)
  1. MULTIPLE VITAMINS [Concomitant]
     Active Substance: VITAMINS
  2. SAVELLA [Concomitant]
     Active Substance: MILNACIPRAN HYDROCHLORIDE
  3. VITAMIN D3 [Concomitant]
     Active Substance: CHOLECALCIFEROL
  4. ALPRAZOLAM. [Concomitant]
     Active Substance: ALPRAZOLAM
  5. COPAXONE [Suspect]
     Active Substance: GLATIRAMER ACETATE
     Indication: MULTIPLE SCLEROSIS
     Route: 058
     Dates: start: 20180315
  6. CALCIUM [Concomitant]
     Active Substance: CALCIUM
  7. FENOFIBRATE. [Concomitant]
     Active Substance: FENOFIBRATE
  8. GABAPENTIN. [Concomitant]
     Active Substance: GABAPENTIN
  9. ASPIRIN. [Concomitant]
     Active Substance: ASPIRIN
  10. BACLOFEN. [Concomitant]
     Active Substance: BACLOFEN
  11. METFORMIN [Concomitant]
     Active Substance: METFORMIN HYDROCHLORIDE
  12. ALLOPURINOL. [Concomitant]
     Active Substance: ALLOPURINOL
  13. LISINOPRIL. [Concomitant]
     Active Substance: LISINOPRIL
  14. VITAMIN B12 [Concomitant]
     Active Substance: CYANOCOBALAMIN

REACTIONS (5)
  - Transient ischaemic attack [Recovered/Resolved]
  - Speech disorder [Not Recovered/Not Resolved]
  - Hemiparesis [Not Recovered/Not Resolved]
  - Cerebrovascular accident [Recovering/Resolving]
  - Fatigue [Not Recovered/Not Resolved]

NARRATIVE: CASE EVENT DATE: 20200205
